FAERS Safety Report 18547617 (Version 1)
Quarter: 2020Q4

REPORT INFORMATION
  Report Type: Spontaneous
  Country: US (occurrence: US)
  Receive Date: 20201126
  Receipt Date: 20201126
  Transmission Date: 20210114
  Serious: Yes (Other)
  Sender: FDA-Public Use
  Company Number: US-LEADINGPHARMA-US-2020LEALIT00169

PATIENT
  Age: 22 Year
  Sex: Female

DRUGS (7)
  1. LEVOMILNACIPRAN [Suspect]
     Active Substance: LEVOMILNACIPRAN
     Indication: SUICIDE ATTEMPT
     Route: 065
  2. PROMETHAZINE [Suspect]
     Active Substance: PROMETHAZINE HYDROCHLORIDE
     Indication: SUICIDE ATTEMPT
     Route: 065
  3. LAMOTRIGINE. [Suspect]
     Active Substance: LAMOTRIGINE
     Indication: SUICIDE ATTEMPT
     Route: 065
  4. ONDANSETRON [Suspect]
     Active Substance: ONDANSETRON
     Indication: SUICIDE ATTEMPT
     Route: 065
  5. VORTIOXETINE. [Suspect]
     Active Substance: VORTIOXETINE
     Indication: SUICIDE ATTEMPT
     Route: 065
  6. VENLAFAXINE [Suspect]
     Active Substance: VENLAFAXINE HYDROCHLORIDE
     Indication: SUICIDE ATTEMPT
     Route: 065
  7. LORAZEPAM TABLETS USP [Suspect]
     Active Substance: LORAZEPAM
     Indication: SUICIDE ATTEMPT
     Route: 065

REACTIONS (6)
  - Hypoxia [Unknown]
  - Mental status changes [Unknown]
  - Intentional overdose [Unknown]
  - Coma scale abnormal [Unknown]
  - Respiratory distress [Unknown]
  - Seizure [Unknown]
